FAERS Safety Report 19927117 (Version 1)
Quarter: 2021Q4

REPORT INFORMATION
  Report Type: Spontaneous
  Country: CN (occurrence: CN)
  Receive Date: 20211006
  Receipt Date: 20211006
  Transmission Date: 20220304
  Serious: Yes (Hospitalization)
  Sender: FDA-Public Use
  Company Number: CN-BAXTER-2021BAX026928

PATIENT
  Age: 22 Year
  Sex: Female
  Weight: 48 kg

DRUGS (26)
  1. CYCLOPHOSPHAMIDE [Suspect]
     Active Substance: CYCLOPHOSPHAMIDE
     Indication: Acute lymphocytic leukaemia
     Dosage: CYCLOPHOSPHAMIDE 0.8G + 0.9% SODIUM CHLORIDE 500 ML
     Route: 041
     Dates: start: 20201116, end: 20201116
  2. CYCLOPHOSPHAMIDE [Suspect]
     Active Substance: CYCLOPHOSPHAMIDE
     Dosage: DOSE RE-INTRODUCED; CYCLOPHOSPHAMIDE + 0.9% SODIUM CHLORIDE
     Route: 041
  3. SODIUM CHLORIDE [Suspect]
     Active Substance: SODIUM CHLORIDE
     Indication: Medication dilution
     Dosage: DAUNORUBICIN HYDROCHLORIDE 50 MG + 0.9% SODIUM CHLORIDE 50 ML
     Route: 041
     Dates: start: 20201116, end: 20201118
  4. SODIUM CHLORIDE [Suspect]
     Active Substance: SODIUM CHLORIDE
     Dosage: METHYLPREDNISOLONE SODIUM SUCCINATE 60 MG + 0.9% SODIUM CHLORIDE 100 ML
     Route: 041
     Dates: start: 20201116, end: 20201202
  5. SODIUM CHLORIDE [Suspect]
     Active Substance: SODIUM CHLORIDE
     Dosage: CYTARABINE 0.05 G + 0.9% SODIUM CHLORIDE 1.5 ML
     Route: 037
     Dates: start: 20201110, end: 20201112
  6. SODIUM CHLORIDE [Suspect]
     Active Substance: SODIUM CHLORIDE
     Dosage: METHOTREXATE 5 MG + 0.9% SODIUM CHLORIDE 3 ML
     Route: 037
     Dates: start: 20201110, end: 20201112
  7. SODIUM CHLORIDE [Suspect]
     Active Substance: SODIUM CHLORIDE
     Dosage: CYCLOPHOSPHAMIDE 0.8G + 0.9% SODIUM CHLORIDE 500 ML
     Route: 041
     Dates: start: 20201116, end: 20201116
  8. SODIUM CHLORIDE [Suspect]
     Active Substance: SODIUM CHLORIDE
     Dosage: VINCRISTINE SULFATE 2 MG + 0.9% SODIUM CHLORIDE 10 ML
     Route: 042
     Dates: start: 20201116, end: 20201123
  9. SODIUM CHLORIDE [Suspect]
     Active Substance: SODIUM CHLORIDE
     Dosage: DOSE RE-INTRODUCED; CYCLOPHOSPHAMIDE + 0.9% SODIUM CHLORIDE
     Route: 041
  10. SODIUM CHLORIDE [Suspect]
     Active Substance: SODIUM CHLORIDE
     Dosage: DOSE RE-INTRODUCED; CYTARABINE + 0.9% SODIUM CHLORIDE
     Route: 037
  11. SODIUM CHLORIDE [Suspect]
     Active Substance: SODIUM CHLORIDE
     Dosage: DOSE RE-INTRODUCED; DAUNORUBICIN HYDROCHLORIDE + 0.9% SODIUM CHLORIDE
     Route: 041
  12. SODIUM CHLORIDE [Suspect]
     Active Substance: SODIUM CHLORIDE
     Dosage: DOSE RE-INTRODUCED; METHOTREXATE + 0.9% SODIUM CHLORIDE
     Route: 037
  13. SODIUM CHLORIDE [Suspect]
     Active Substance: SODIUM CHLORIDE
     Dosage: DOSE RE-INTRODUCED; METHYLPREDNISOLONE SODIUM SUCCINATE + 0.9% SODIUM CHLORIDE
     Route: 041
  14. SODIUM CHLORIDE [Suspect]
     Active Substance: SODIUM CHLORIDE
     Dosage: DOSE RE-INTRODUCED; VINCRISTINE SULFATE + 0.9% SODIUM CHLORIDE
     Route: 042
  15. CYTARABINE [Suspect]
     Active Substance: CYTARABINE
     Indication: Acute lymphocytic leukaemia
     Dosage: CYTARABINE 0.05 G + 0.9% SODIUM CHLORIDE 1.5 ML
     Route: 037
     Dates: start: 20201110, end: 20201112
  16. CYTARABINE [Suspect]
     Active Substance: CYTARABINE
     Dosage: DOSE RE-INTRODUCED; CYTARABINE + 0.9% SODIUM CHLORIDE
     Route: 037
  17. DAUNORUBICIN HYDROCHLORIDE [Suspect]
     Active Substance: DAUNORUBICIN HYDROCHLORIDE
     Indication: Acute lymphocytic leukaemia
     Dosage: DAUNORUBICIN HYDROCHLORIDE 50 MG + 0.9% SODIUM CHLORIDE 50 ML
     Route: 041
     Dates: start: 20201116, end: 20201118
  18. DAUNORUBICIN HYDROCHLORIDE [Suspect]
     Active Substance: DAUNORUBICIN HYDROCHLORIDE
     Dosage: DOSE RE-INTRODUCED; DAUNORUBICIN HYDROCHLORIDE + 0.9% SODIUM CHLORIDE
     Route: 041
  19. PEGASPARGASE [Suspect]
     Active Substance: PEGASPARGASE
     Indication: Acute lymphocytic leukaemia
     Route: 030
     Dates: start: 20201123, end: 20201123
  20. PEGASPARGASE [Suspect]
     Active Substance: PEGASPARGASE
     Route: 030
  21. VINCRISTINE SULFATE [Suspect]
     Active Substance: VINCRISTINE SULFATE
     Indication: Acute lymphocytic leukaemia
     Dosage: VINCRISTINE SULFATE 2 MG + 0.9% SODIUM CHLORIDE 10 ML
     Route: 042
     Dates: start: 20201116, end: 20201123
  22. VINCRISTINE SULFATE [Suspect]
     Active Substance: VINCRISTINE SULFATE
     Dosage: DOSE RE-INTRODUCED; VINCRISTINE SULFATE + 0.9% SODIUM CHLORIDE
     Route: 042
  23. METHOTREXATE [Suspect]
     Active Substance: METHOTREXATE
     Indication: Acute lymphocytic leukaemia
     Dosage: METHOTREXATE 5 MG + 0.9% SODIUM CHLORIDE 3 ML
     Route: 037
     Dates: start: 20201110, end: 20201112
  24. METHOTREXATE [Suspect]
     Active Substance: METHOTREXATE
     Dosage: DOSE RE-INTRODUCED; METHOTREXATE + 0.9% SODIUM CHLORIDE
     Route: 037
  25. METHYLPREDNISOLONE SODIUM SUCCINATE [Suspect]
     Active Substance: METHYLPREDNISOLONE SODIUM SUCCINATE
     Indication: Acute lymphocytic leukaemia
     Dosage: METHYLPREDNISOLONE SODIUM SUCCINATE 60 MG + 0.9% SODIUM CHLORIDE 100 ML
     Route: 041
     Dates: start: 20201116, end: 20201202
  26. METHYLPREDNISOLONE SODIUM SUCCINATE [Suspect]
     Active Substance: METHYLPREDNISOLONE SODIUM SUCCINATE
     Dosage: DOSE RE-INTRODUCED; METHYLPREDNISOLONE SODIUM SUCCINATE + 0.9% SODIUM CHLORIDE
     Route: 041

REACTIONS (1)
  - Myelosuppression [Recovered/Resolved]

NARRATIVE: CASE EVENT DATE: 20201126
